FAERS Safety Report 15990527 (Version 3)
Quarter: 2019Q2

REPORT INFORMATION
  Report Type: Report from Study
  Country: None (occurrence: CO)
  Receive Date: 20190221
  Receipt Date: 20190627
  Transmission Date: 20190711
  Serious: Yes (Hospitalization, Other)
  Sender: FDA-Public Use
  Company Number: CO-ABBVIE-19K-036-2640410-00

PATIENT
  Age: 58 Year
  Sex: Male
  Weight: 75 kg

DRUGS (6)
  1. CALCITRIOL. [Concomitant]
     Active Substance: CALCITRIOL
     Indication: PRODUCT USED FOR UNKNOWN INDICATION
  2. HUMIRA [Suspect]
     Active Substance: ADALIMUMAB
     Indication: ANKYLOSING SPONDYLITIS
     Route: 058
     Dates: start: 20120322
  3. ACETAMINOPHEN. [Concomitant]
     Active Substance: ACETAMINOPHEN
     Indication: PRODUCT USED FOR UNKNOWN INDICATION
  4. NAPROXEN. [Concomitant]
     Active Substance: NAPROXEN
     Indication: PRODUCT USED FOR UNKNOWN INDICATION
     Dosage: AS NEED
  5. HUMIRA [Suspect]
     Active Substance: ADALIMUMAB
     Dosage: HUMIRA AC
     Route: 058
  6. METHOTREXATO [Concomitant]
     Active Substance: METHOTREXATE
     Indication: PRODUCT USED FOR UNKNOWN INDICATION

REACTIONS (8)
  - Iliac artery occlusion [Unknown]
  - Laboratory test abnormal [Recovering/Resolving]
  - Large intestinal obstruction [Unknown]
  - Nephrolithiasis [Recovering/Resolving]
  - Nephritis [Unknown]
  - Diverticulum intestinal [Unknown]
  - Testicular pain [Recovered/Resolved]
  - Testicular pain [Recovering/Resolving]

NARRATIVE: CASE EVENT DATE: 201812
